FAERS Safety Report 8440159-2 (Version None)
Quarter: 2012Q2

REPORT INFORMATION
  Report Type: 
  Country: None (occurrence: None)
  Receive Date: 20120615
  Receipt Date: 20120612
  Transmission Date: 20120825
  Serious: Yes (Hospitalization)
  Sender: FDA-Public Use
  Company Number: AR-ROCHE-1013626

PATIENT
  Sex: Female

DRUGS (1)
  1. LUCENTIS [Suspect]
     Indication: MACULOPATHY
     Route: 050
     Dates: start: 20100301

REACTIONS (4)
  - EMOTIONAL DISTRESS [None]
  - FALL [None]
  - CEREBROVASCULAR ACCIDENT [None]
  - HIP FRACTURE [None]
